FAERS Safety Report 14795102 (Version 1)
Quarter: 2018Q2

REPORT INFORMATION
  Report Type: Report from Study
  Country: IT (occurrence: IT)
  Receive Date: 20180423
  Receipt Date: 20180423
  Transmission Date: 20180711
  Serious: Yes (Other)
  Sender: FDA-Public Use
  Company Number: IT-VALIDUS PHARMACEUTICALS LLC-IT-2018VAL000669

PATIENT
  Age: 74 Year
  Sex: Male

DRUGS (3)
  1. COUMADIN [Suspect]
     Active Substance: WARFARIN SODIUM
     Indication: ATRIAL FIBRILLATION
     Dosage: 30 MG, QD
     Route: 048
     Dates: start: 20170804, end: 20170804
  2. FUROSEMIDE. [Suspect]
     Active Substance: FUROSEMIDE
     Indication: SELF-INJURIOUS IDEATION
     Dosage: 100 MG, QD
     Route: 048
     Dates: start: 20170804, end: 20170804
  3. HALCION [Suspect]
     Active Substance: TRIAZOLAM
     Indication: INSOMNIA
     Dosage: 250 ?G, QD
     Route: 048
     Dates: start: 20170804, end: 20170804

REACTIONS (2)
  - Anxiety [Recovering/Resolving]
  - Sopor [Recovering/Resolving]

NARRATIVE: CASE EVENT DATE: 20170804
